FAERS Safety Report 9018890 (Version 3)
Quarter: 2013Q1

REPORT INFORMATION
  Report Type: Spontaneous
  Country: JP (occurrence: JP)
  Receive Date: 20130118
  Receipt Date: 20130312
  Transmission Date: 20140127
  Serious: Yes (Death, Life-Threatening)
  Sender: FDA-Public Use
  Company Number: JP-ABBOTT-12P-087-1027126-00

PATIENT
  Age: 25 Year
  Sex: Male
  Weight: 69 kg

DRUGS (7)
  1. ULTANE [Suspect]
     Indication: GENERAL ANAESTHESIA
     Route: 055
     Dates: start: 20121217, end: 20121217
  2. MIDAZOLAM [Suspect]
     Indication: ANALGESIC THERAPY
     Dosage: 3MG, 2MG, A TOTAL OF 12.5MG
     Route: 042
     Dates: start: 20121217
  3. PENTAZOCINE [Concomitant]
     Indication: ANALGESIC THERAPY
     Route: 042
     Dates: start: 20121217, end: 20121217
  4. PENTAZOCINE [Concomitant]
     Dates: start: 20121217
  5. NITROUS OXIDE [Concomitant]
     Indication: GENERAL ANAESTHESIA
     Route: 055
     Dates: start: 20121217
  6. BUPIVACAINE HYDROCHLORIDE HYDRATE (HYPERBARIC MARCAIN 0.5%) [Concomitant]
     Indication: SPINAL ANAESTHESIA
     Route: 037
     Dates: start: 20121217
  7. FLURBIPROFEN [Concomitant]
     Indication: PRODUCT USED FOR UNKNOWN INDICATION
     Dates: start: 20121217

REACTIONS (5)
  - Hyperthermia malignant [Fatal]
  - Appendicitis [Fatal]
  - Cardiac arrest [Fatal]
  - Cardiac arrest [Recovered/Resolved]
  - Multi-organ failure [Unknown]
